FAERS Safety Report 24651068 (Version 1)
Quarter: 2024Q4

REPORT INFORMATION
  Report Type: Spontaneous
  Country: DE (occurrence: DE)
  Receive Date: 20241122
  Receipt Date: 20241122
  Transmission Date: 20250115
  Serious: Yes (Other)
  Sender: AUROBINDO
  Company Number: DE-ROCHE-10000120789

PATIENT
  Age: 70 Year
  Sex: Male
  Weight: 70 kg

DRUGS (4)
  1. OXALIPLATIN [Suspect]
     Active Substance: OXALIPLATIN
     Indication: Neoplasm malignant
     Dosage: 153.85 MILLIGRAM EVERY 2 WEEKS (153.85 MILLIGRAM EVERY 2 WEEKS (DATE OF MOST RECENT DOSE OF CANCER T
     Route: 042
     Dates: start: 20240325, end: 20240624
  2. FLUOROURACIL [Suspect]
     Active Substance: FLUOROURACIL
     Indication: Neoplasm malignant
     Dosage: 4344 MILLIGRAM EVERY 2 WEEKS  (DATE OF MOST RECENT DOSE OF CANCER TREATMENT 2 PRIOR TO AE/SAE ONSET:
     Route: 042
     Dates: start: 20240325, end: 20240624
  3. LEUCOVORIN CALCIUM [Suspect]
     Active Substance: LEUCOVORIN CALCIUM
     Indication: Neoplasm malignant
     Dosage: 724 MILLIGRAM   EVERY 2 WEEKS (DATE OF MOST RECENT DOSE OF CANCER TREATMENT 3 PRIOR TO AE/SAE ONSET:
     Route: 042
     Dates: start: 20240325, end: 20240624
  4. PANITUMUMAB [Suspect]
     Active Substance: PANITUMUMAB
     Indication: Neoplasm malignant
     Dosage: 280 MILLIGRAM EVERY 2 WEEKS (DATE OF MOST RECENT DOSE OF CANCER TREATMENT 1 PRIOR TO AE/SAE ONSET: 2
     Route: 042
     Dates: start: 20240325, end: 20240624

REACTIONS (1)
  - Polyneuropathy [Not Recovered/Not Resolved]

NARRATIVE: CASE EVENT DATE: 20240507
